FAERS Safety Report 9738473 (Version 18)
Quarter: 2014Q3

REPORT INFORMATION
  Report Type: Spontaneous
  Country: US (occurrence: US)
  Receive Date: 20131208
  Receipt Date: 20140704
  Transmission Date: 20150326
  Serious: Yes (Other)
  Sender: FDA-Public Use
  Company Number: US-009507513-1311USA012237

PATIENT
  Age: 29 Year
  Sex: Female
  Weight: 77.98 kg

DRUGS (2)
  1. VITAMINS (UNSPECIFIED) [Concomitant]
     Active Substance: VITAMINS
     Dosage: UNK
  2. IMPLANON [Suspect]
     Active Substance: ETONOGESTREL
     Indication: CONTRACEPTION
     Dosage: 1ROD /3 YEARS
     Route: 059
     Dates: start: 20110623

REACTIONS (8)
  - Surgery [Unknown]
  - Device dislocation [Recovered/Resolved]
  - Medical device complication [Recovered/Resolved]
  - Incorrect route of drug administration [Recovered/Resolved]
  - Device deployment issue [Recovered/Resolved]
  - Metrorrhagia [Unknown]
  - Hypomenorrhoea [Unknown]
  - Device difficult to use [Recovered/Resolved]

NARRATIVE: CASE EVENT DATE: 2011
